FAERS Safety Report 5477508-3 (Version None)
Quarter: 2007Q4

REPORT INFORMATION
  Report Type: 
  Country: None (occurrence: None)
  Receive Date: 20071004
  Receipt Date: 20070925
  Transmission Date: 20080405
  Serious: Yes (Disabling)
  Sender: FDA-Public Use
  Company Number: PT-PFIZER INC-2007081421

PATIENT
  Sex: Male

DRUGS (3)
  1. CHAMPIX [Suspect]
     Indication: SMOKING CESSATION THERAPY
     Route: 048
  2. CHAMPIX [Suspect]
     Dosage: TEXT:0,5MG BID  TDD:1MG
     Route: 048
  3. CHAMPIX [Suspect]
     Dosage: TEXT:1MG BID  TDD:2MG
     Route: 048

REACTIONS (6)
  - ANXIETY [None]
  - COORDINATION ABNORMAL [None]
  - DISORIENTATION [None]
  - INSOMNIA [None]
  - IRRITABILITY [None]
  - NIGHTMARE [None]
